FAERS Safety Report 7045068-1 (Version None)
Quarter: 2010Q3

REPORT INFORMATION
  Report Type: 
  Country: None (occurrence: None)
  Receive Date: 20100929
  Receipt Date: 20100609
  Transmission Date: 20110219
  Serious: No
  Sender: FDA-Public Use
  Company Number: US-WYE-H15600310

PATIENT

DRUGS (2)
  1. PRISTIQ [Suspect]
  2. COUMADIN [Suspect]

REACTIONS (1)
  - BLEEDING TIME ABNORMAL [None]
